FAERS Safety Report 10520987 (Version 2)
Quarter: 2014Q4

REPORT INFORMATION
  Report Type: Spontaneous
  Country: JP (occurrence: JP)
  Receive Date: 20141016
  Receipt Date: 20141111
  Transmission Date: 20150528
  Serious: Yes (Hospitalization, Other)
  Sender: FDA-Public Use
  Company Number: JP-009507513-1410JPN005804

PATIENT
  Age: 43 Year
  Sex: Male
  Weight: 67 kg

DRUGS (9)
  1. NITROUS OXIDE. [Concomitant]
     Active Substance: NITROUS OXIDE
     Indication: MAINTENANCE OF ANAESTHESIA
     Dosage: DAILY DOSE UNKNOWN; 66%/DAY, DIVIDED DOSE FREQUENCY UNKNOWN
     Route: 055
  2. RINDERON (BETAMETHASONE SODIUM PHOSPHATE) [Concomitant]
     Indication: INFLAMMATION
     Dosage: 4 MG, 1 DAY; DIVIDED DOSE FREQUENCY UNKNOWN
     Route: 042
     Dates: start: 20140306
  3. FENTANYL. [Concomitant]
     Active Substance: FENTANYL
     Indication: ANALGESIC THERAPY
     Dosage: 3 ML, 1 DAY; DIVIDED DOSE FREQUENCY UNKNOWN
     Route: 042
     Dates: start: 20140306
  4. ESLAX INTRAVENOUS 25MG/2.5ML [Suspect]
     Active Substance: ROCURONIUM BROMIDE
     Indication: NEUROMUSCULAR BLOCKING THERAPY
     Dosage: 4.5 ML, 1 DAY, DIVIDED DOSE FREQUENCY UNKNOWN
     Route: 042
     Dates: start: 20140306
  5. CEFAMEZIN [Concomitant]
     Active Substance: CEFAZOLIN
     Indication: INFECTION PROPHYLAXIS
     Dosage: 1 G, 1 DAY, DIVIDED DOSE FREQUENCY UNKNOWN
     Route: 042
     Dates: start: 20140306
  6. SEVOFRANE [Suspect]
     Active Substance: SEVOFLURANE
     Indication: MAINTENANCE OF ANAESTHESIA
     Dosage: DAILY DOSE UNKNOWN, 1.0 - 1.5% DAY. DIVIDED DOSE FREQUENCY UNKNOWN
     Route: 055
     Dates: start: 20140306
  7. OXYGEN. [Concomitant]
     Active Substance: OXYGEN
     Indication: MAINTENANCE OF ANAESTHESIA
     Dosage: DAILY DOSE UNKNOWN
     Route: 055
  8. PROPOFOL. [Suspect]
     Active Substance: PROPOFOL
     Indication: INDUCTION OF ANAESTHESIA
     Dosage: 17 ML, 1 DAY; DIVIDED DOSE FREQUENCY UNKNOWN
     Route: 042
     Dates: start: 20140306
  9. LOXONIN [Concomitant]
     Active Substance: LOXOPROFEN SODIUM
     Indication: ANALGESIC THERAPY
     Dosage: FORMULATION: POR, 60 MG, QD
     Route: 048
     Dates: start: 20140306

REACTIONS (2)
  - Rhabdomyolysis [Recovered/Resolved]
  - Anaesthetic complication [Unknown]

NARRATIVE: CASE EVENT DATE: 20140306
